FAERS Safety Report 11352282 (Version 2)
Quarter: 2015Q3

REPORT INFORMATION
  Report Type: Spontaneous
  Country: GB (occurrence: GB)
  Receive Date: 20150807
  Receipt Date: 20150928
  Transmission Date: 20151125
  Serious: Yes (Death, Other)
  Sender: FDA-Public Use
  Company Number: GB-TEVA-582837ACC

PATIENT
  Age: 48 Year
  Sex: Male
  Weight: 79 kg

DRUGS (19)
  1. ACIDEX [Concomitant]
     Active Substance: CALCIUM CARBONATE\SODIUM ALGINATE\SODIUM BICARBONATE
  2. ARIPIPRAZOLE. [Concomitant]
     Active Substance: ARIPIPRAZOLE
  3. ATORVASTATIN [Concomitant]
     Active Substance: ATORVASTATIN
  4. DIAZEPAM. [Concomitant]
     Active Substance: DIAZEPAM
  5. TRIHEXYPHENIDYL [Concomitant]
     Active Substance: TRIHEXYPHENIDYL
  6. ZAPONEX [Suspect]
     Active Substance: CLOZAPINE
     Indication: SCHIZOPHRENIA
     Route: 048
     Dates: start: 20140304, end: 20150505
  7. ACRIVASTINE [Concomitant]
     Active Substance: ACRIVASTINE
  8. SERETIDE [Concomitant]
     Active Substance: FLUTICASONE FUROATE\SALMETEROL XINAFOATE
  9. LANSOPRAZOLE. [Concomitant]
     Active Substance: LANSOPRAZOLE
  10. METOCLOPRAMIDE. [Concomitant]
     Active Substance: METOCLOPRAMIDE
  11. ZOPICLONE [Suspect]
     Active Substance: ZOPICLONE
  12. LISINOPRIL. [Concomitant]
     Active Substance: LISINOPRIL
  13. LACTULOSE. [Concomitant]
     Active Substance: LACTULOSE
  14. SAXAGLIPTIN [Concomitant]
     Active Substance: SAXAGLIPTIN
  15. BECLOMETASONE [Concomitant]
     Active Substance: BECLOMETHASONE DIPROPIONATE
  16. CROMOGLICATE SODIUM [Concomitant]
     Active Substance: CROMOLYN SODIUM
  17. SALBUTAMOL [Concomitant]
     Active Substance: ALBUTEROL
  18. TRAMADOL. [Suspect]
     Active Substance: TRAMADOL
  19. GLICLAZIDE [Concomitant]
     Active Substance: GLICLAZIDE

REACTIONS (11)
  - Hepatomegaly [Not Recovered/Not Resolved]
  - Platelet count increased [Not Recovered/Not Resolved]
  - Intentional overdose [Fatal]
  - Antipsychotic drug level increased [Not Recovered/Not Resolved]
  - Pulmonary oedema [Not Recovered/Not Resolved]
  - Cardiomegaly [Not Recovered/Not Resolved]
  - Toxicity to various agents [Fatal]
  - Aortic arteriosclerosis [Not Recovered/Not Resolved]
  - Arteriosclerosis coronary artery [Not Recovered/Not Resolved]
  - Spleen congestion [Not Recovered/Not Resolved]
  - Renal disorder [Not Recovered/Not Resolved]

NARRATIVE: CASE EVENT DATE: 20150303
